FAERS Safety Report 20591961 (Version 1)
Quarter: 2022Q1

REPORT INFORMATION
  Report Type: Spontaneous
  Country: US (occurrence: US)
  Receive Date: 20220314
  Receipt Date: 20220314
  Transmission Date: 20220423
  Serious: Yes (Other)
  Sender: FDA-Public Use
  Company Number: US-CELGENE-USA-20220303769

PATIENT
  Age: 75 Year
  Sex: Male
  Weight: 100.79 kg

DRUGS (1)
  1. POMALYST [Suspect]
     Active Substance: POMALIDOMIDE
     Indication: Plasma cell myeloma
     Dosage: 4 MILLIGRAM
     Route: 048
     Dates: start: 20220108

REACTIONS (2)
  - Thrombosis [Unknown]
  - Muscle injury [Unknown]

NARRATIVE: CASE EVENT DATE: 20220310
